FAERS Safety Report 9270550 (Version 1)
Quarter: 2013Q2

REPORT INFORMATION
  Report Type: Spontaneous
  Country: CA (occurrence: CA)
  Receive Date: 20130504
  Receipt Date: 20130504
  Transmission Date: 20140414
  Serious: Yes (Hospitalization)
  Sender: FDA-Public Use
  Company Number: CA-ALLERGAN-1306304US

PATIENT
  Age: 60 Year
  Sex: Male

DRUGS (2)
  1. BOTOX? [Suspect]
     Indication: MUSCLE SPASTICITY
     Dosage: UNK UNK, SINGLE
  2. UNSPECIFIED ANTI COAGULANT [Suspect]
     Indication: PRODUCT USED FOR UNKNOWN INDICATION

REACTIONS (2)
  - Pain [Unknown]
  - Haemorrhage [Not Recovered/Not Resolved]
